FAERS Safety Report 7215134-6 (Version None)
Quarter: 2011Q1

REPORT INFORMATION
  Report Type: 
  Country: None (occurrence: None)
  Receive Date: 20110107
  Receipt Date: 20101004
  Transmission Date: 20110831
  Serious: No
  Sender: FDA-Public Use
  Company Number: A0879864A

PATIENT
  Age: 70 Year
  Sex: Female

DRUGS (20)
  1. LOVAZA [Suspect]
     Dosage: 2CAP TWICE PER DAY
     Route: 048
     Dates: start: 20100801
  2. PLENDIL [Concomitant]
  3. EVISTA [Concomitant]
  4. AMITIZA [Concomitant]
  5. NASONEX [Concomitant]
  6. VITAMIN D [Concomitant]
  7. VITAMIN E [Concomitant]
  8. REFRESH EYE DROPS [Concomitant]
  9. ZYRTEC [Concomitant]
  10. CENTRUM SILVER [Concomitant]
  11. PRAVASTATIN [Concomitant]
     Route: 048
  12. ZETIA [Concomitant]
  13. TRIAMTEREN + HYDROCHLOROTHIAZIDE [Concomitant]
  14. SODIUM CHLORIDE 0.9% [Concomitant]
     Route: 045
  15. CALTRATE [Concomitant]
  16. VENTOLIN [Concomitant]
  17. ASPIRIN [Concomitant]
  18. DEXLANSOPRAZOLE [Concomitant]
  19. TRAVATAN [Concomitant]
  20. BENICAR [Concomitant]

REACTIONS (4)
  - NAUSEA [None]
  - CONSTIPATION [None]
  - ABDOMINAL DISCOMFORT [None]
  - DIARRHOEA [None]
